FAERS Safety Report 26179879 (Version 1)
Quarter: 2025Q4

REPORT INFORMATION
  Report Type: Spontaneous
  Country: US (occurrence: US)
  Receive Date: 20251219
  Receipt Date: 20251219
  Transmission Date: 20260118
  Serious: No
  Sender: FRESENIUS KABI
  Company Number: US-FreseniusKabi-FK202516762

PATIENT
  Age: 69 Year
  Sex: Male

DRUGS (4)
  1. FULVESTRANT [Suspect]
     Active Substance: FULVESTRANT
     Indication: Breast cancer metastatic
     Dosage: ONGOING
     Dates: start: 201511
  2. FULVESTRANT [Suspect]
     Active Substance: FULVESTRANT
     Dosage: ONGOING?UNKNOWN DOSAGE
     Dates: start: 20151101
  3. IBRANCE [Suspect]
     Active Substance: PALBOCICLIB
     Indication: Breast cancer metastatic
     Dosage: ONGOING
     Dates: start: 201511
  4. IBRANCE [Suspect]
     Active Substance: PALBOCICLIB
     Dosage: UNKNOWN DOSAGE
     Dates: start: 20151101

REACTIONS (4)
  - Platelet count decreased [Not Recovered/Not Resolved]
  - Red blood cell count decreased [Not Recovered/Not Resolved]
  - Investigation abnormal [Not Recovered/Not Resolved]
  - Fatigue [Not Recovered/Not Resolved]
